FAERS Safety Report 16454897 (Version 2)
Quarter: 2019Q2

REPORT INFORMATION
  Report Type: Spontaneous
  Country: US (occurrence: US)
  Receive Date: 20190619
  Receipt Date: 20190619
  Transmission Date: 20190711
  Serious: Yes (Death, Hospitalization)
  Sender: FDA-Public Use
  Company Number: PHEH2019US025780

PATIENT
  Age: 72 Year
  Sex: Female
  Weight: 68.93 kg

DRUGS (2)
  1. FULVESTRANT. [Suspect]
     Active Substance: FULVESTRANT
     Indication: BREAST CANCER METASTATIC
     Dosage: UNK
     Route: 065
     Dates: start: 20190401
  2. KISQALI [Suspect]
     Active Substance: RIBOCICLIB
     Indication: BREAST CANCER METASTATIC
     Dosage: 600 MG/KG, UNK (3 200MG TABLETS TAKEN ONCE DAILY FOR 3 WEEKS, THEN 1 WEEK OFF PER 28 DAYS)
     Route: 048
     Dates: start: 20190401, end: 20190531

REACTIONS (4)
  - Dyspnoea [Fatal]
  - Pleural mass [Fatal]
  - Cardiomegaly [Fatal]
  - Chest X-ray abnormal [Fatal]

NARRATIVE: CASE EVENT DATE: 20190401
